FAERS Safety Report 26059759 (Version 1)
Quarter: 2025Q4

REPORT INFORMATION
  Report Type: Spontaneous
  Country: BR (occurrence: None)
  Receive Date: 20251118
  Receipt Date: 20251118
  Transmission Date: 20260117
  Serious: Yes (Hospitalization, Other)
  Sender: ORGANON
  Company Number: BR-ORGANON-O2511BRA001072

PATIENT
  Sex: Female

DRUGS (1)
  1. ETONOGESTREL [Suspect]
     Active Substance: ETONOGESTREL
     Dosage: 1 IMPLANT

REACTIONS (6)
  - Anaesthetic complication [Unknown]
  - Liposuction [Unknown]
  - Paraplegia [Recovered/Resolved]
  - Back pain [Recovered/Resolved]
  - Implant site discolouration [Unknown]
  - Implant site fibrosis [Unknown]

NARRATIVE: CASE EVENT DATE: 20250101
